FAERS Safety Report 4373539-5 (Version None)
Quarter: 2004Q1

REPORT INFORMATION
  Report Type: 
  Country: None (occurrence: None)
  Receive Date: 20040305
  Receipt Date: 20031107
  Transmission Date: 20041129
  Serious: Yes (Other)
  Sender: FDA-Public Use
  Company Number: 2003UW14752

PATIENT
  Age: 77 Year
  Sex: Female

DRUGS (6)
  1. CRESTOR [Suspect]
     Dosage: 10 MG
  2. TRICOR [Concomitant]
  3. AVAPRO [Concomitant]
  4. LANOXIN [Concomitant]
  5. LASIX [Concomitant]
  6. NORVASC [Concomitant]

REACTIONS (4)
  - LOOSE STOOLS [None]
  - PARAESTHESIA ORAL [None]
  - SPEECH DISORDER [None]
  - TONGUE COATED [None]
